FAERS Safety Report 25433168 (Version 2)
Quarter: 2025Q2

REPORT INFORMATION
  Report Type: Spontaneous
  Country: US (occurrence: US)
  Receive Date: 20250613
  Receipt Date: 20250617
  Transmission Date: 20250716
  Serious: Yes (Hospitalization, Other)
  Sender: PFIZER
  Company Number: US-PFIZER INC-202500041518

PATIENT
  Age: 66 Year
  Sex: Female

DRUGS (5)
  1. ELIQUIS [Suspect]
     Active Substance: APIXABAN
     Indication: Heart rate
  2. BRAFTOVI [Suspect]
     Active Substance: ENCORAFENIB
     Indication: Lung carcinoma cell type unspecified stage IV
     Dosage: 150 MG, 1X/DAY (FOR 7 DAYS)
  3. BRAFTOVI [Suspect]
     Active Substance: ENCORAFENIB
     Dosage: 300 MG, 1X/DAY (FOR 7 DAYS)
  4. BRAFTOVI [Suspect]
     Active Substance: ENCORAFENIB
     Dosage: 450MG CAPSULES PO (ORALLY) QD (ONCE A DAY)
     Route: 048
  5. MEKTOVI [Suspect]
     Active Substance: BINIMETINIB
     Indication: Lung carcinoma cell type unspecified stage IV
     Dosage: 45MG TABLETS PO BID (TWICE A DAY)
     Route: 048

REACTIONS (6)
  - Pain [Unknown]
  - Vascular operation [Unknown]
  - Gangrene [Unknown]
  - Coronary artery thrombosis [Unknown]
  - Off label use [Unknown]
  - Off label use [Unknown]

NARRATIVE: CASE EVENT DATE: 20250301
